FAERS Safety Report 21597854 (Version 1)
Quarter: 2022Q4

REPORT INFORMATION
  Report Type: Spontaneous
  Country: US (occurrence: None)
  Receive Date: 20221114
  Receipt Date: 20221114
  Transmission Date: 20230113
  Serious: Yes (Hospitalization)
  Sender: FDA-Public Use
  Company Number: None

PATIENT
  Age: 87 Year
  Sex: Male
  Weight: 68 kg

DRUGS (2)
  1. VENCLEXTA [Suspect]
     Active Substance: VENETOCLAX
     Indication: Acute myeloid leukaemia
     Dosage: FREQUENCY : DAILY;?
     Route: 048
     Dates: start: 20221014, end: 20221107
  2. Venclexra [Concomitant]
     Dates: start: 20221014, end: 20221107

REACTIONS (2)
  - Mental status changes [None]
  - Pancytopenia [None]

NARRATIVE: CASE EVENT DATE: 20221110
